FAERS Safety Report 7808177-2 (Version None)
Quarter: 2011Q4

REPORT INFORMATION
  Report Type: 
  Country: None (occurrence: None)
  Receive Date: 20111011
  Receipt Date: 20111005
  Transmission Date: 20120403
  Serious: Yes (Hospitalization)
  Sender: FDA-Public Use
  Company Number: JP-MERCK-1107USA02995

PATIENT
  Age: 49 Year
  Sex: Female
  Weight: 55 kg

DRUGS (6)
  1. EPINASTINE HYDROCHLORIDE [Suspect]
     Indication: PUSTULAR PSORIASIS
     Route: 048
     Dates: start: 20100521, end: 20100702
  2. PEPCID RPD [Suspect]
     Indication: PROPHYLAXIS AGAINST GASTROINTESTINAL ULCER
     Route: 048
     Dates: start: 20100415, end: 20100702
  3. BIOTIN [Concomitant]
     Indication: PUSTULAR PSORIASIS
     Route: 065
     Dates: start: 20100514, end: 20100101
  4. LOXONIN [Concomitant]
     Indication: ARTHRALGIA
     Route: 065
     Dates: start: 20100414
  5. DAPSONE [Suspect]
     Indication: ACUTE FEBRILE NEUTROPHILIC DERMATOSIS
     Route: 048
     Dates: start: 20100426, end: 20100702
  6. BIOFERMIN [Concomitant]
     Indication: PUSTULAR PSORIASIS
     Route: 065
     Dates: start: 20100514

REACTIONS (1)
  - HEPATIC FUNCTION ABNORMAL [None]
